FAERS Safety Report 21980368 (Version 5)
Quarter: 2023Q2

REPORT INFORMATION
  Report Type: Report from Study
  Country: US (occurrence: US)
  Receive Date: 20230211
  Receipt Date: 20230623
  Transmission Date: 20230722
  Serious: Yes (Other)
  Sender: FDA-Public Use
  Company Number: US-002147023-NVSC2023US028336

PATIENT
  Age: 61 Year
  Sex: Female

DRUGS (5)
  1. COSENTYX [Suspect]
     Active Substance: SECUKINUMAB
     Indication: Psoriasis
     Dosage: UNK
     Route: 065
  2. COSENTYX [Suspect]
     Active Substance: SECUKINUMAB
     Indication: Psoriatic arthropathy
     Dosage: 300 MG, QMO
     Route: 030
     Dates: start: 20221209, end: 20230517
  3. CLOBETASOL PROPIONATE [Concomitant]
     Active Substance: CLOBETASOL PROPIONATE
     Indication: Psoriatic arthropathy
     Dosage: UNK
     Route: 065
  4. LAMISIL [Concomitant]
     Active Substance: TERBINAFINE HYDROCHLORIDE
     Indication: Psoriasis
     Dosage: UNK
     Route: 065
  5. TRETINOIN [Concomitant]
     Active Substance: TRETINOIN
     Indication: Psoriatic arthropathy
     Dosage: UNK
     Route: 065

REACTIONS (10)
  - Psoriatic arthropathy [Unknown]
  - Erythema [Recovering/Resolving]
  - Pruritus [Recovering/Resolving]
  - Dry skin [Unknown]
  - Vulvovaginal dryness [Not Recovered/Not Resolved]
  - Dry eye [Not Recovered/Not Resolved]
  - Skin exfoliation [Unknown]
  - Product use issue [Not Recovered/Not Resolved]
  - Incorrect route of product administration [Unknown]
  - Therapeutic product effect incomplete [Unknown]

NARRATIVE: CASE EVENT DATE: 20230517
